FAERS Safety Report 8917731 (Version 1)
Quarter: 2012Q4

REPORT INFORMATION
  Report Type: 
  Country: US (occurrence: US)
  Receive Date: 20121119
  Receipt Date: 20121119
  Transmission Date: 20130627
  Serious: Yes (Hospitalization)
  Sender: FDA-Public Use
  Company Number: US-ABBOTT-12P-163-0998764-00

PATIENT
  Age: 33 None
  Sex: Male
  Weight: 72.64 kg

DRUGS (1)
  1. HUMIRA PEN [Suspect]
     Indication: HIDRADENITIS
     Dosage: Only took one dose
     Dates: start: 20121008, end: 20121008

REACTIONS (5)
  - Joint swelling [Unknown]
  - Arthralgia [Unknown]
  - Arthritis [Not Recovered/Not Resolved]
  - Arthralgia [Not Recovered/Not Resolved]
  - Off label use [Unknown]
